FAERS Safety Report 6321437-X (Version None)
Quarter: 2009Q3

REPORT INFORMATION
  Report Type: 
  Country: None (occurrence: None)
  Receive Date: 20090822
  Receipt Date: 20090130
  Transmission Date: 20100115
  Serious: No
  Sender: FDA-Public Use
  Company Number: US-ABBOTT-09P-163-0499634-00

PATIENT
  Sex: Female
  Weight: 82.628 kg

DRUGS (4)
  1. NIASPAN [Suspect]
     Indication: BLOOD CHOLESTEROL
     Dates: start: 20081001
  2. PHENOBARBITAL [Concomitant]
     Indication: CONVULSION
     Dates: start: 19970101
  3. DICLOFENAC [Concomitant]
     Indication: MYALGIA
     Dates: start: 20080101
  4. DICLOFENAC [Concomitant]
     Indication: ARTHRALGIA

REACTIONS (3)
  - FLUSHING [None]
  - VISION BLURRED [None]
  - VISUAL IMPAIRMENT [None]
